FAERS Safety Report 18856572 (Version 11)
Quarter: 2022Q2

REPORT INFORMATION
  Report Type: Report from Study
  Country: US (occurrence: US)
  Receive Date: 20210207
  Receipt Date: 20220628
  Transmission Date: 20220720
  Serious: Yes (Hospitalization, Other)
  Sender: FDA-Public Use
  Company Number: US-SHIRE-US202024901

PATIENT
  Sex: Female
  Weight: 80 kg

DRUGS (15)
  1. HUMAN IMMUNOGLOBULIN G\HYALURONIDASE RECOMBINANT HUMAN [Suspect]
     Active Substance: HUMAN IMMUNOGLOBULIN G\HYALURONIDASE RECOMBINANT HUMAN
     Indication: Primary immunodeficiency syndrome
     Dosage: 40 GRAM, Q3WEEKS
     Route: 058
  2. HUMAN IMMUNOGLOBULIN G\HYALURONIDASE RECOMBINANT HUMAN [Suspect]
     Active Substance: HUMAN IMMUNOGLOBULIN G\HYALURONIDASE RECOMBINANT HUMAN
     Indication: Rheumatoid arthritis
     Dosage: 40 GRAM, Q3WEEKS
     Route: 058
     Dates: start: 20211218
  3. HUMAN IMMUNOGLOBULIN G\HYALURONIDASE RECOMBINANT HUMAN [Suspect]
     Active Substance: HUMAN IMMUNOGLOBULIN G\HYALURONIDASE RECOMBINANT HUMAN
     Indication: Congenital hypogammaglobulinaemia
  4. HUMAN IMMUNOGLOBULIN G\HYALURONIDASE RECOMBINANT HUMAN [Suspect]
     Active Substance: HUMAN IMMUNOGLOBULIN G\HYALURONIDASE RECOMBINANT HUMAN
     Indication: Selective IgG subclass deficiency
  5. ENOXAPARIN [Suspect]
     Active Substance: ENOXAPARIN
     Indication: Cardiovascular disorder
     Dosage: UNK
     Route: 058
  6. DIPHENHYDRAMINE [Concomitant]
     Active Substance: DIPHENHYDRAMINE
     Route: 065
  7. EPINEPHRINE [Concomitant]
     Active Substance: EPINEPHRINE
     Route: 065
  8. ACETAMINOPHEN [Concomitant]
     Active Substance: ACETAMINOPHEN
     Route: 065
  9. ALPHA LIPOIC ACID [Concomitant]
     Active Substance: .ALPHA.-LIPOIC ACID
  10. SODIUM CHLORIDE [Concomitant]
     Active Substance: SODIUM CHLORIDE
     Route: 065
  11. HYDROCHLOROTHIAZIDE [Concomitant]
     Active Substance: HYDROCHLOROTHIAZIDE
  12. CLONIDINE HYDROCHLORIDE [Concomitant]
     Active Substance: CLONIDINE HYDROCHLORIDE
  13. XOLAIR [Concomitant]
     Active Substance: OMALIZUMAB
     Route: 065
  14. LIDOCAINE [Concomitant]
     Active Substance: LIDOCAINE
     Route: 065
  15. TYMLOS [Concomitant]
     Active Substance: ABALOPARATIDE

REACTIONS (26)
  - Vesical fistula [Unknown]
  - Bladder perforation [Unknown]
  - Urinary tract infection [Not Recovered/Not Resolved]
  - Sigmoidectomy [Unknown]
  - Spinal disorder [Unknown]
  - Joint injury [Unknown]
  - Infected fistula [Unknown]
  - Gastrointestinal fistula [Unknown]
  - Intracardiac thrombus [Unknown]
  - Thrombosis [Unknown]
  - Pulmonary thrombosis [Unknown]
  - Urogenital fistula [Unknown]
  - Coagulopathy [Unknown]
  - Tooth abscess [Unknown]
  - Cardiac murmur [Unknown]
  - Hypoaesthesia [Unknown]
  - Road traffic accident [Unknown]
  - Productive cough [Unknown]
  - Back disorder [Recovering/Resolving]
  - Fatigue [Unknown]
  - Respiratory tract infection [Not Recovered/Not Resolved]
  - Hip arthroplasty [Unknown]
  - Product leakage [Unknown]
  - Infusion site bruising [Unknown]
  - Needle issue [Unknown]
  - Infection [Not Recovered/Not Resolved]
